FAERS Safety Report 13149059 (Version 4)
Quarter: 2018Q1

REPORT INFORMATION
  Report Type: Report from Study
  Country: US (occurrence: US)
  Receive Date: 20170124
  Receipt Date: 20180125
  Transmission Date: 20180508
  Serious: No
  Sender: FDA-Public Use
  Company Number: US-AMGEN-USASL2016180208

PATIENT
  Age: 72 Year
  Sex: Female

DRUGS (2)
  1. TRULICITY [Concomitant]
     Active Substance: DULAGLUTIDE
     Indication: DIABETES MELLITUS
     Dosage: UNK UNK, EVERY FRIDAY
  2. REPATHA [Suspect]
     Active Substance: EVOLOCUMAB
     Indication: BLOOD CHOLESTEROL INCREASED
     Dosage: 140 MG, Q2WK
     Route: 065
     Dates: start: 201612

REACTIONS (6)
  - Circumstance or information capable of leading to medication error [Unknown]
  - Drug dose omission [Unknown]
  - Skin discolouration [Unknown]
  - Injection site pain [Unknown]
  - Injection site erythema [Unknown]
  - Wrong technique in product usage process [Unknown]

NARRATIVE: CASE EVENT DATE: 20170627
